FAERS Safety Report 12219024 (Version 1)
Quarter: 2016Q1

REPORT INFORMATION
  Report Type: Spontaneous
  Country: US (occurrence: US)
  Receive Date: 20160329
  Receipt Date: 20160329
  Transmission Date: 20160526
  Serious: Yes (Death, Hospitalization, Other)
  Sender: FDA-Public Use
  Company Number: US-GLAXOSMITHKLINE-US2016042541

PATIENT
  Age: 76 Year
  Sex: Male

DRUGS (3)
  1. LAMICTAL [Suspect]
     Active Substance: LAMOTRIGINE
     Indication: BIPOLAR DISORDER
     Dosage: 200 MG, QD
     Route: 048
  2. LAMICTAL [Suspect]
     Active Substance: LAMOTRIGINE
     Dosage: 50 MG, UNK
  3. LAMICTAL [Suspect]
     Active Substance: LAMOTRIGINE
     Dosage: 400 MG, QD
     Route: 048

REACTIONS (10)
  - Overdose [Recovered/Resolved]
  - Rehabilitation therapy [Unknown]
  - Living in residential institution [Unknown]
  - Infection [Recovered/Resolved]
  - Vomiting [Recovered/Resolved]
  - Ill-defined disorder [Unknown]
  - Death [Fatal]
  - Pneumonia [Unknown]
  - Hallucination [Recovered/Resolved]
  - Asthenia [Recovered/Resolved]

NARRATIVE: CASE EVENT DATE: 201603
